FAERS Safety Report 8109892-6 (Version None)
Quarter: 2012Q1

REPORT INFORMATION
  Report Type: 
  Country: None (occurrence: None)
  Receive Date: 20120202
  Receipt Date: 20120120
  Transmission Date: 20120608
  Serious: Yes (Hospitalization)
  Sender: FDA-Public Use
  Company Number: US-AMGEN-USASP2012005207

PATIENT
  Sex: Male
  Weight: 2.721 kg

DRUGS (1)
  1. ENBREL [Suspect]
     Dosage: 50 MG, QWK
     Route: 064
     Dates: start: 20050101, end: 20080101

REACTIONS (5)
  - UPPER RESPIRATORY TRACT INFECTION [None]
  - CROUP INFECTIOUS [None]
  - COUGH [None]
  - ECZEMA [None]
  - RHINORRHOEA [None]
